FAERS Safety Report 25607696 (Version 2)
Quarter: 2025Q3

REPORT INFORMATION
  Report Type: Report from Study
  Country: US (occurrence: US)
  Receive Date: 20250725
  Receipt Date: 20250926
  Transmission Date: 20251021
  Serious: Yes (Life-Threatening)
  Sender: NOVARTIS
  Company Number: US-002147023-NVSC2025US079126

PATIENT
  Sex: Female

DRUGS (3)
  1. KESIMPTA [Suspect]
     Active Substance: OFATUMUMAB
     Indication: Product used for unknown indication
     Dosage: 20 MG, QMO (1ST INJECTION)
     Route: 058
  2. KESIMPTA [Suspect]
     Active Substance: OFATUMUMAB
     Route: 065
  3. KESIMPTA [Suspect]
     Active Substance: OFATUMUMAB
     Route: 065
     Dates: start: 20250501

REACTIONS (8)
  - Respiratory arrest [Unknown]
  - Cyanosis [Unknown]
  - Eye movement disorder [Unknown]
  - Fall [Unknown]
  - Chills [Unknown]
  - Pain [Unknown]
  - Muscular weakness [Unknown]
  - Mobility decreased [Unknown]
